FAERS Safety Report 7061087-3 (Version None)
Quarter: 2010Q4

REPORT INFORMATION
  Report Type: 
  Country: None (occurrence: None)
  Receive Date: 20101026
  Receipt Date: 20101014
  Transmission Date: 20110411
  Serious: Yes (Other)
  Sender: FDA-Public Use
  Company Number: CH-PFIZER INC-2010123324

PATIENT
  Age: 80 Year
  Sex: Male

DRUGS (6)
  1. XALATAN [Suspect]
     Dosage: 1 GTT, 1X/DAY
     Route: 047
     Dates: start: 20010101
  2. DIAMOX SRC [Concomitant]
     Dosage: 250 MG, UNK
     Dates: start: 20070101
  3. DIOVAN HCT [Concomitant]
     Dosage: UNK
  4. MARCUMAR [Concomitant]
     Dosage: UNK
  5. OLFEN [Concomitant]
     Dosage: UNK
  6. OMEPRAZOLE [Concomitant]
     Dosage: UNK

REACTIONS (2)
  - DRUG INEFFECTIVE [None]
  - INTRAOCULAR PRESSURE INCREASED [None]
